FAERS Safety Report 5240336-8 (Version None)
Quarter: 2007Q1

REPORT INFORMATION
  Report Type: 
  Country: None (occurrence: None)
  Receive Date: 20070219
  Receipt Date: 20070209
  Transmission Date: 20070707
  Serious: Yes (Other)
  Sender: FDA-Public Use
  Company Number: 2007AP00904

PATIENT
  Age: 26170 Day
  Sex: Female

DRUGS (6)
  1. CANDESARTAN HYDROCHLOROTHIAZIDE [Suspect]
     Route: 048
     Dates: start: 20060511
  2. CANDESARTAN HYDROCHLOROTHIAZIDE [Suspect]
     Route: 048
     Dates: start: 20061027
  3. METRONIDAZOLE [Concomitant]
  4. ANTENEX [Concomitant]
     Indication: ANXIETY DISORDER
     Dosage: LONG TERM
     Route: 048
  5. PLAVIX [Concomitant]
     Dosage: LONG TERM
     Route: 048
  6. NOTEN [Concomitant]
     Indication: MYOCARDIAL ISCHAEMIA
     Dosage: LONG TERM
     Route: 048

REACTIONS (9)
  - ABDOMINAL PAIN [None]
  - ASTHENIA [None]
  - BALANCE DISORDER [None]
  - CHILLS [None]
  - FLUSHING [None]
  - NAUSEA [None]
  - PARAESTHESIA [None]
  - PYREXIA [None]
  - VOMITING [None]
